FAERS Safety Report 4924272-X (Version None)
Quarter: 2006Q1

REPORT INFORMATION
  Report Type: 
  Country: None (occurrence: None)
  Receive Date: 20060227
  Receipt Date: 20060217
  Transmission Date: 20060701
  Serious: Yes (Death, Other)
  Sender: FDA-Public Use
  Company Number: JP-JNJFOC-20051005995

PATIENT
  Sex: Male
  Weight: 62 kg

DRUGS (9)
  1. REMICADE [Suspect]
     Indication: CROHN'S DISEASE
     Route: 042
  2. PREDONINE [Suspect]
     Route: 048
  3. PREDONINE [Suspect]
     Indication: CROHN'S DISEASE
     Route: 048
  4. PARIET [Concomitant]
     Indication: REFLUX OESOPHAGITIS
     Route: 048
  5. MUCOSTA [Concomitant]
     Indication: PROPHYLAXIS
     Route: 048
  6. PENTASA [Concomitant]
     Indication: CROHN'S DISEASE
     Route: 048
  7. ELENTAL [Concomitant]
     Route: 048
  8. ELENTAL [Concomitant]
     Indication: CROHN'S DISEASE
     Route: 048
  9. BIO-THREE [Concomitant]
     Indication: CROHN'S DISEASE
     Route: 048

REACTIONS (6)
  - DISSEMINATED INTRAVASCULAR COAGULATION [None]
  - METHICILLIN-RESISTANT STAPHYLOCOCCAL AUREUS TEST [None]
  - PNEUMONIA [None]
  - PSEUDOMONAS INFECTION [None]
  - SEPSIS [None]
  - SERRATIA INFECTION [None]
